FAERS Safety Report 15622433 (Version 4)
Quarter: 2019Q1

REPORT INFORMATION
  Report Type: Spontaneous
  Country: US (occurrence: US)
  Receive Date: 20181115
  Receipt Date: 20190201
  Transmission Date: 20190417
  Serious: No
  Sender: FDA-Public Use
  Company Number: US-ASTRAZENECA-2018SF37837

PATIENT
  Sex: Female
  Weight: 86.2 kg

DRUGS (3)
  1. METFORMIN [Concomitant]
     Active Substance: METFORMIN HYDROCHLORIDE
  2. SPIRONOLACTONE. [Concomitant]
     Active Substance: SPIRONOLACTONE
  3. SYMBICORT [Suspect]
     Active Substance: BUDESONIDE\FORMOTEROL FUMARATE DIHYDRATE
     Indication: ASTHMA
     Dosage: 160/4.5 MCG. 2 PUFFS TWICE A DAY
     Route: 055
     Dates: start: 2012

REACTIONS (17)
  - Tongue discomfort [Unknown]
  - Glossodynia [Recovering/Resolving]
  - Hypogeusia [Recovering/Resolving]
  - Polycystic ovaries [Unknown]
  - Adrenal disorder [Unknown]
  - Atrial fibrillation [Not Recovered/Not Resolved]
  - Breath sounds abnormal [Not Recovered/Not Resolved]
  - Blood glucose decreased [Unknown]
  - Intentional product misuse [Not Recovered/Not Resolved]
  - Off label use of device [Unknown]
  - Asthma [Not Recovered/Not Resolved]
  - Lymphadenopathy [Not Recovered/Not Resolved]
  - Respiratory tract infection viral [Not Recovered/Not Resolved]
  - Device malfunction [Unknown]
  - Diabetes mellitus [Unknown]
  - Thyroid disorder [Unknown]
  - Malaise [Unknown]
